FAERS Safety Report 8479701-4 (Version None)
Quarter: 2012Q2

REPORT INFORMATION
  Report Type: 
  Country: None (occurrence: None)
  Receive Date: 20120629
  Receipt Date: 20120619
  Transmission Date: 20120825
  Serious: Yes (Hospitalization)
  Sender: FDA-Public Use
  Company Number: FR-ABBOTT-12P-056-0947459-00

PATIENT
  Age: 56 Year
  Sex: Female
  Weight: 92 kg

DRUGS (14)
  1. HUMIRA [Suspect]
     Indication: CROHN'S DISEASE
     Dosage: INDUCTION REGIMEN: 80 MG (BASELINE)/40 MG (WEEK 2)
     Route: 058
     Dates: start: 20071029, end: 20071029
  2. CANDESARTAN CILEXETIL AND HYDROCHLOROTHIAZIDE [Concomitant]
     Indication: HYPERTENSION
     Dates: start: 20080101
  3. ZOVIRAX [Concomitant]
     Indication: ORAL HERPES
     Dates: start: 20100301, end: 20100601
  4. HUMIRA [Suspect]
     Dosage: WEEK 2
     Route: 058
  5. BEDELIX [Concomitant]
     Indication: CROHN'S DISEASE
     Dosage: 2 BAGS
  6. ALPRAZOLAM [Concomitant]
     Indication: ANXIETY
  7. RHINOCORT [Concomitant]
     Indication: RHINITIS
     Dosage: 2 SPRAY QD
     Dates: start: 20111209
  8. HUMIRA [Suspect]
     Route: 058
     Dates: start: 20090525
  9. ARESTAL [Concomitant]
     Indication: CROHN'S DISEASE
     Dosage: 1 CP
     Dates: start: 20070101
  10. PROPRANOLOL [Concomitant]
     Indication: HYPERTENSION
     Dates: start: 20080101
  11. RILMENIDINE [Concomitant]
     Indication: HYPERTENSION
  12. ANTIHISTAMINES [Concomitant]
     Indication: RHINITIS
     Dates: start: 20111209
  13. TRIDESONIT [Concomitant]
     Indication: PSORIASIS
     Dates: start: 20110101
  14. HUMIRA [Suspect]
     Route: 058
     Dates: end: 20090525

REACTIONS (1)
  - COUGH [None]
